FAERS Safety Report 10651694 (Version 1)
Quarter: 2014Q4

REPORT INFORMATION
  Report Type: Spontaneous
  Country: FR (occurrence: FR)
  Receive Date: 20141215
  Receipt Date: 20141215
  Transmission Date: 20150529
  Serious: Yes (Hospitalization, Other)
  Sender: FDA-Public Use
  Company Number: FR-PFIZER INC-2014336450

PATIENT
  Age: 74 Year
  Sex: Male

DRUGS (4)
  1. VIAGRA [Interacting]
     Active Substance: SILDENAFIL CITRATE
     Dosage: 50 MG, SINGLE
     Route: 048
     Dates: start: 20141124, end: 20141124
  2. ALCOHOL. [Interacting]
     Active Substance: ALCOHOL
  3. VIAGRA [Suspect]
     Active Substance: SILDENAFIL CITRATE
     Dosage: 100 MG, SINGLE
     Route: 048
     Dates: start: 20140617, end: 20140617
  4. VIAGRA [Interacting]
     Active Substance: SILDENAFIL CITRATE
     Dosage: 100 MG, SINGLE
     Route: 048
     Dates: start: 20140913, end: 20140913

REACTIONS (3)
  - Seizure [Recovered/Resolved]
  - Alcohol interaction [Recovered/Resolved]
  - Generalised tonic-clonic seizure [Recovered/Resolved]

NARRATIVE: CASE EVENT DATE: 20140617
